FAERS Safety Report 8409412 (Version 4)
Quarter: 2013Q3

REPORT INFORMATION
  Report Type: Spontaneous
  Country: CA (occurrence: CA)
  Receive Date: 20120216
  Receipt Date: 20130820
  Transmission Date: 20140515
  Serious: Yes (Hospitalization)
  Sender: FDA-Public Use
  Company Number: CA-GLAXOSMITHKLINE-A0964892A

PATIENT
  Age: 56 Year
  Sex: Female

DRUGS (7)
  1. TYKERB [Suspect]
     Indication: HER-2 POSITIVE BREAST CANCER
     Dosage: 1250MG PER DAY
     Route: 048
     Dates: start: 20111228, end: 20130325
  2. ATENOLOL [Concomitant]
  3. NORVASC [Concomitant]
  4. HCTZ [Concomitant]
  5. DEXAMETHASONE [Concomitant]
  6. XELODA [Concomitant]
  7. FRAGMIN [Concomitant]

REACTIONS (11)
  - Pulmonary thrombosis [Unknown]
  - Cough [Unknown]
  - Haemoptysis [Unknown]
  - Chest discomfort [Unknown]
  - Hypotension [Unknown]
  - Arthralgia [Not Recovered/Not Resolved]
  - Skin discolouration [Not Recovered/Not Resolved]
  - Dry skin [Not Recovered/Not Resolved]
  - Nail discolouration [Not Recovered/Not Resolved]
  - Lung neoplasm malignant [Not Recovered/Not Resolved]
  - Malignant neoplasm progression [Unknown]
